FAERS Safety Report 7056000-9 (Version None)
Quarter: 2010Q4

REPORT INFORMATION
  Report Type: 
  Country: None (occurrence: None)
  Receive Date: 20101021
  Receipt Date: 20101014
  Transmission Date: 20110411
  Serious: Yes (Hospitalization)
  Sender: FDA-Public Use
  Company Number: A0887663A

PATIENT
  Sex: Male

DRUGS (1)
  1. AVANDIA [Suspect]
     Dates: start: 20040101

REACTIONS (2)
  - ANGIOPLASTY [None]
  - MYOCARDIAL ISCHAEMIA [None]
